FAERS Safety Report 18472525 (Version 1)
Quarter: 2020Q4

REPORT INFORMATION
  Report Type: Spontaneous
  Country: US (occurrence: US)
  Receive Date: 20201106
  Receipt Date: 20201106
  Transmission Date: 20210114
  Serious: Yes (Other)
  Sender: FDA-Public Use
  Company Number: US-APOTEX-2020AP021165

PATIENT
  Age: 73 Year
  Sex: Female

DRUGS (3)
  1. ERLOTINIB [Suspect]
     Active Substance: ERLOTINIB
     Indication: BREAST CANCER
     Dosage: UNK
     Route: 065
  2. DOXYCYCLINE. [Suspect]
     Active Substance: DOXYCYCLINE
     Indication: DERMATITIS ACNEIFORM
     Dosage: UNK
     Route: 065
  3. ERLOTINIB [Suspect]
     Active Substance: ERLOTINIB
     Indication: NON-SMALL CELL LUNG CANCER METASTATIC

REACTIONS (10)
  - Hypersensitivity vasculitis [Recovered/Resolved]
  - Hair texture abnormal [Unknown]
  - Paronychia [Unknown]
  - Dermatitis acneiform [Unknown]
  - Naevoid melanoma [Recovered/Resolved]
  - Melanocytic naevus [Unknown]
  - Drug intolerance [Unknown]
  - Xerosis [Unknown]
  - Pruritus [Unknown]
  - Gastrointestinal disorder [Unknown]
